FAERS Safety Report 24558136 (Version 2)
Quarter: 2024Q4

REPORT INFORMATION
  Report Type: Spontaneous
  Country: US (occurrence: US)
  Receive Date: 20241028
  Receipt Date: 20241125
  Transmission Date: 20250114
  Serious: No
  Sender: BAUSCH AND LOMB
  Company Number: US-BAUSCHBL-2024BNL036216

PATIENT
  Age: 82 Year
  Sex: Female

DRUGS (1)
  1. XIIDRA [Suspect]
     Active Substance: LIFITEGRAST
     Indication: Dry eye
     Route: 047
     Dates: start: 20241001, end: 2024

REACTIONS (3)
  - Eye pruritus [Recovered/Resolved]
  - Dysgeusia [Recovered/Resolved]
  - Product after taste [Unknown]

NARRATIVE: CASE EVENT DATE: 20240101
